FAERS Safety Report 23780206 (Version 1)
Quarter: 2024Q2

REPORT INFORMATION
  Report Type: Spontaneous
  Country: US (occurrence: US)
  Receive Date: 20240424
  Receipt Date: 20240424
  Transmission Date: 20240716
  Serious: No
  Sender: FDA-Public Use
  Company Number: US-Merz Pharmaceuticals GmbH-24-01298

PATIENT
  Sex: Female

DRUGS (3)
  1. XEOMIN [Suspect]
     Active Substance: INCOBOTULINUMTOXINA
     Indication: Product used for unknown indication
  2. BOTOX [Concomitant]
     Active Substance: ONABOTULINUMTOXINA
  3. DYSPORT [Concomitant]
     Active Substance: ABOBOTULINUMTOXINA

REACTIONS (1)
  - Drug ineffective [Unknown]
